FAERS Safety Report 8018204-8 (Version None)
Quarter: 2012Q1

REPORT INFORMATION
  Report Type: 
  Country: None (occurrence: None)
  Receive Date: 20120103
  Receipt Date: 20111223
  Transmission Date: 20120608
  Serious: Yes (Other)
  Sender: FDA-Public Use
  Company Number: JP-GENZYME-THYM-1002947

PATIENT
  Age: 10 Year
  Sex: Female

DRUGS (1)
  1. THYMOGLOBULIN [Suspect]
     Indication: APLASTIC ANAEMIA
     Dosage: 3.75 MG/KG, QD
     Route: 042

REACTIONS (5)
  - HISTIOCYTOSIS HAEMATOPHAGIC [None]
  - ANAEMIA [None]
  - PLATELET COUNT DECREASED [None]
  - LYMPHOPENIA [None]
  - BRONCHOPULMONARY ASPERGILLOSIS [None]
